FAERS Safety Report 18725719 (Version 1)
Quarter: 2021Q1

REPORT INFORMATION
  Report Type: Spontaneous
  Country: US (occurrence: US)
  Receive Date: 20210111
  Receipt Date: 20210111
  Transmission Date: 20210419
  Serious: Yes (Other)
  Sender: FDA-Public Use
  Company Number: US-MYLANLABS-2021M1000890

PATIENT
  Age: 71 Year
  Sex: Female

DRUGS (1)
  1. PREDNISONE. [Suspect]
     Active Substance: PREDNISONE
     Indication: SIALOADENITIS
     Dosage: 2?MONTH COURSE OF 10?30 MG
     Route: 065

REACTIONS (1)
  - Diabetic ketoacidosis [Recovered/Resolved]
